FAERS Safety Report 8981107 (Version 1)
Quarter: 2012Q4

REPORT INFORMATION
  Report Type: 
  Country: US (occurrence: US)
  Receive Date: 20121221
  Receipt Date: 20121221
  Transmission Date: 20130627
  Serious: No
  Sender: FDA-Public Use
  Company Number: US-JHP PHARMACEUTICALS, LLC-JHP201200242

PATIENT
  Sex: Male

DRUGS (2)
  1. APLISOL DIAGNOSTIC ANTIGEN [Suspect]
     Indication: TUBERCULIN TEST
     Dosage: 0.1 ml, single
     Route: 023
     Dates: start: 2011, end: 2011
  2. APLISOL DIAGNOSTIC ANTIGEN [Suspect]
     Dosage: 0.1 ml, single
     Route: 023
     Dates: start: 201205, end: 201205

REACTIONS (2)
  - Injection site discolouration [Not Recovered/Not Resolved]
  - Injection site bruising [Unknown]
